FAERS Safety Report 24874628 (Version 3)
Quarter: 2025Q1

REPORT INFORMATION
  Report Type: Report from Study
  Country: US (occurrence: US)
  Receive Date: 20250122
  Receipt Date: 20250225
  Transmission Date: 20250408
  Serious: Yes (Other)
  Sender: BOEHRINGER INGELHEIM
  Company Number: US-BoehringerIngelheim-2024-BI-053712

PATIENT
  Age: 80 Year
  Sex: Female

DRUGS (3)
  1. OFEV [Suspect]
     Active Substance: NINTEDANIB
     Indication: Idiopathic pulmonary fibrosis
  2. OFEV [Suspect]
     Active Substance: NINTEDANIB
  3. MYCOPHENOLIC ACID [Suspect]
     Active Substance: MYCOPHENOLIC ACID
     Indication: Product used for unknown indication

REACTIONS (20)
  - Tumour haemorrhage [Unknown]
  - Abdominal discomfort [Unknown]
  - Vomiting [Unknown]
  - Pain in extremity [Unknown]
  - Headache [Not Recovered/Not Resolved]
  - Abdominal pain [Not Recovered/Not Resolved]
  - Diarrhoea [Not Recovered/Not Resolved]
  - Asthenia [Not Recovered/Not Resolved]
  - Cough [Recovering/Resolving]
  - Faeces discoloured [Not Recovered/Not Resolved]
  - Gastrooesophageal reflux disease [Unknown]
  - Blood glucose fluctuation [Unknown]
  - Diabetes mellitus [Unknown]
  - Sneezing [Unknown]
  - Abdominal pain upper [Unknown]
  - Asthma [Unknown]
  - Fatigue [Unknown]
  - Ear pruritus [Unknown]
  - Dermatitis contact [Unknown]
  - Pruritus [Unknown]

NARRATIVE: CASE EVENT DATE: 20240924
